FAERS Safety Report 5381185-X (Version None)
Quarter: 2007Q3

REPORT INFORMATION
  Report Type: 
  Country: None (occurrence: None)
  Receive Date: 20070706
  Receipt Date: 20070626
  Transmission Date: 20080115
  Serious: Yes (Disabling, Other)
  Sender: FDA-Public Use
  Company Number: US-MERCK-0706USA00564

PATIENT
  Sex: Male

DRUGS (8)
  1. LEVEMIR [Concomitant]
     Route: 048
  2. MICARDIS [Concomitant]
     Route: 048
  3. [THERAPY UNSPECIFIED] [Concomitant]
     Route: 065
  4. FOSAMAX [Suspect]
     Route: 048
     Dates: start: 20070101
  5. HYDRODIURIL [Concomitant]
     Route: 048
  6. LANTUS [Concomitant]
     Route: 065
  7. LANTUS [Concomitant]
     Route: 065
  8. METOPROLOL TARTRATE [Concomitant]
     Route: 048

REACTIONS (1)
  - OSTEONECROSIS [None]
